FAERS Safety Report 13611139 (Version 3)
Quarter: 2017Q4

REPORT INFORMATION
  Report Type: Report from Study
  Country: US (occurrence: US)
  Receive Date: 20170605
  Receipt Date: 20171215
  Transmission Date: 20180320
  Serious: No
  Sender: FDA-Public Use
  Company Number: PHEH2017US016799

PATIENT
  Age: 53 Year
  Sex: Female

DRUGS (1)
  1. COSENTYX [Suspect]
     Active Substance: SECUKINUMAB
     Indication: PSORIASIS
     Dosage: 300 MG, QMO
     Route: 058
     Dates: start: 20170217

REACTIONS (2)
  - Psoriasis [Unknown]
  - Inappropriate schedule of drug administration [Unknown]

NARRATIVE: CASE EVENT DATE: 20170217
